FAERS Safety Report 4357517-8 (Version None)
Quarter: 2004Q2

REPORT INFORMATION
  Report Type: 
  Country: None (occurrence: None)
  Receive Date: 20040511
  Receipt Date: 20040511
  Transmission Date: 20050107
  Serious: Yes (Hospitalization)
  Sender: FDA-Public Use
  Company Number: None

PATIENT
  Age: 73 Year
  Sex: Female
  Weight: 121 kg

DRUGS (12)
  1. WARFARIN SODIUM [Suspect]
     Indication: MITRAL VALVE REPLACEMENT
     Dosage: 5 MG PO DAILY CHRONIC
     Route: 048
  2. METOPROLOL [Concomitant]
  3. PEPCID [Concomitant]
  4. NPH REGULAR INSULIN [Concomitant]
  5. PANAFIL [Concomitant]
  6. DULCOLAX [Concomitant]
  7. DILAUDID [Concomitant]
  8. LACTULOSE [Concomitant]
  9. PERCOCET [Concomitant]
  10. QUININE [Concomitant]
  11. AMBIEN [Concomitant]
  12. EPOGEN [Concomitant]

REACTIONS (3)
  - BLOOD PH INCREASED [None]
  - INTERNATIONAL NORMALISED RATIO INCREASED [None]
  - POST PROCEDURAL HAEMORRHAGE [None]
